FAERS Safety Report 4824757-0 (Version None)
Quarter: 2005Q4

REPORT INFORMATION
  Report Type: 
  Country: None (occurrence: None)
  Receive Date: 20051108
  Receipt Date: 20051025
  Transmission Date: 20060501
  Serious: Yes (Other)
  Sender: FDA-Public Use
  Company Number: 2005BH002576

PATIENT
  Age: 70 Year
  Sex: Male

DRUGS (11)
  1. MORPHINE [Suspect]
     Indication: COUGH
     Dosage: 10 MG;IM
     Route: 030
  2. MORPHINE [Suspect]
     Indication: SEDATION
     Dosage: 10 MG;IM
     Route: 030
  3. ATROPINE [Suspect]
     Indication: COUGH
     Dosage: 0.6 MG;IM
     Route: 030
  4. ATROPINE [Suspect]
     Indication: SEDATION
     Dosage: 0.6 MG;IM
     Route: 030
  5. LIDOCAINE [Suspect]
     Indication: SEDATION
     Dosage: 1200 MG
  6. ATENOLOL [Concomitant]
  7. FRUSEMIDE [Concomitant]
  8. ALLOPURINOL [Concomitant]
  9. CAPTOPRIL [Concomitant]
  10. MYLANTA [Concomitant]
  11. WARFARIN [Concomitant]

REACTIONS (3)
  - BLOOD PROLACTIN INCREASED [None]
  - GRAND MAL CONVULSION [None]
  - SOMNOLENCE [None]
